FAERS Safety Report 9283414 (Version 1)
Quarter: 2013Q2

REPORT INFORMATION
  Report Type: Spontaneous
  Country: ES (occurrence: ES)
  Receive Date: 20130510
  Receipt Date: 20130510
  Transmission Date: 20140414
  Serious: Yes (Hospitalization)
  Sender: FDA-Public Use
  Company Number: ES-PFIZER INC-2003178868ES

PATIENT
  Age: 31 Year
  Sex: Female

DRUGS (4)
  1. SOMAC [Suspect]
     Dosage: 1 DF, 1X/DAY
     Route: 042
     Dates: start: 20030802, end: 20030810
  2. METAMIZOLE [Suspect]
     Dosage: 6 G, 1X/DAY
     Route: 065
     Dates: start: 20030725, end: 20030810
  3. T4 [Concomitant]
  4. OMEPRAZOLE [Concomitant]
     Dosage: UNK
     Dates: end: 20030801

REACTIONS (1)
  - Pancytopenia [Recovering/Resolving]
